FAERS Safety Report 25735186 (Version 1)
Quarter: 2025Q3

REPORT INFORMATION
  Report Type: Report from Study
  Country: CA (occurrence: CA)
  Receive Date: 20250828
  Receipt Date: 20250828
  Transmission Date: 20251021
  Serious: Yes (Hospitalization)
  Sender: GILEAD
  Company Number: CA-GSK-CA2025AMR044890

PATIENT
  Age: 70 Year
  Sex: Female

DRUGS (2)
  1. AMBRISENTAN [Suspect]
     Active Substance: AMBRISENTAN
     Indication: Pulmonary arterial hypertension
     Dosage: 5 MG, QD
     Route: 048
     Dates: start: 20250311
  2. DIGOXIN [Suspect]
     Active Substance: DIGOXIN
     Indication: Product used for unknown indication
     Route: 065

REACTIONS (7)
  - Fall [Unknown]
  - Headache [Unknown]
  - Dyspepsia [Unknown]
  - Diarrhoea [Unknown]
  - Tachycardia [Recovering/Resolving]
  - Joint swelling [Unknown]
  - Joint stiffness [Unknown]

NARRATIVE: CASE EVENT DATE: 20250811
